FAERS Safety Report 6401007-5 (Version None)
Quarter: 2009Q4

REPORT INFORMATION
  Report Type: 
  Country: None (occurrence: None)
  Receive Date: 20091015
  Receipt Date: 20080307
  Transmission Date: 20100525
  Serious: Yes (Hospitalization, Disabling, Other)
  Sender: FDA-Public Use
  Company Number: US-ASTRAZENECA-2007UW12604

PATIENT
  Age: 405 Month
  Sex: Male
  Weight: 153.8 kg

DRUGS (5)
  1. SEROQUEL [Suspect]
     Indication: SCHIZOPHRENIA
     Dosage: 25 MG TO 300 MG
     Route: 048
     Dates: start: 19990212
  2. SEROQUEL [Suspect]
     Dosage: 200-800 MG
     Route: 048
     Dates: start: 19990901, end: 20060401
  3. RISPERDAL [Concomitant]
     Dosage: 2 MG - 6 MG
     Dates: start: 19990208
  4. RISPERDAL [Concomitant]
     Dates: start: 19990805, end: 20000228
  5. ABILIFY [Concomitant]
     Dates: start: 20050401

REACTIONS (5)
  - DIABETES MELLITUS [None]
  - INSULIN RESISTANCE [None]
  - MENTAL DISORDER [None]
  - OBESITY [None]
  - WEIGHT INCREASED [None]
